FAERS Safety Report 9110735 (Version 1)
Quarter: 2013Q1

REPORT INFORMATION
  Report Type: Spontaneous
  Country: US (occurrence: US)
  Receive Date: 20130219
  Receipt Date: 20130219
  Transmission Date: 20140127
  Serious: No
  Sender: FDA-Public Use
  Company Number: US-BRISTOL-MYERS SQUIBB COMPANY-17202029

PATIENT
  Age: 53 Year
  Sex: Female
  Weight: 77.1 kg

DRUGS (18)
  1. ORENCIA FOR INJ [Suspect]
     Route: 058
  2. ALLEGRA [Concomitant]
  3. FOLIC ACID [Concomitant]
  4. LEXAPRO [Concomitant]
  5. PREDNISONE [Concomitant]
  6. MULTIVITAMIN [Concomitant]
  7. CALCIUM [Concomitant]
  8. PRILOSEC [Concomitant]
  9. RELAFEN [Concomitant]
  10. NABUMETONE [Concomitant]
  11. VITAMIN D [Concomitant]
  12. VITAMIN B12 [Concomitant]
  13. AMBIEN [Concomitant]
  14. FLONASE [Concomitant]
  15. FLOVENT [Concomitant]
  16. ALBUTEROL [Concomitant]
  17. AMITRIPTYLINE [Concomitant]
  18. METHOTREXATE [Concomitant]

REACTIONS (3)
  - Headache [Unknown]
  - Glossodynia [Unknown]
  - Glossitis [Unknown]
